FAERS Safety Report 5245228-6 (Version None)
Quarter: 2007Q1

REPORT INFORMATION
  Report Type: 
  Country: None (occurrence: None)
  Receive Date: 20070223
  Receipt Date: 20070212
  Transmission Date: 20070707
  Serious: Yes (Hospitalization)
  Sender: FDA-Public Use
  Company Number: GB-ROCHE-483012

PATIENT
  Age: 85 Year
  Sex: Female

DRUGS (2)
  1. BONVIVA [Suspect]
     Indication: OSTEOPOROSIS
     Route: 048
     Dates: start: 20061210
  2. LISINOPRIL [Concomitant]
     Route: 048

REACTIONS (2)
  - EXTRUSION OF DEVICE [None]
  - FALL [None]
